FAERS Safety Report 15075905 (Version 1)
Quarter: 2018Q2

REPORT INFORMATION
  Report Type: Spontaneous
  Country: US (occurrence: US)
  Receive Date: 20180627
  Receipt Date: 20180627
  Transmission Date: 20180711
  Serious: No
  Sender: FDA-Public Use
  Company Number: US-SA-2018SA170294

PATIENT
  Sex: Female

DRUGS (3)
  1. NASACORT ALLERGY 24HR [Suspect]
     Active Substance: TRIAMCINOLONE ACETONIDE
     Dosage: UNK UNK, QD
     Dates: start: 201806
  2. AMOXICILLIN. [Concomitant]
     Active Substance: AMOXICILLIN
  3. PENICILLIN B [Concomitant]
     Active Substance: PHENETICILLIN

REACTIONS (1)
  - Blood pressure increased [Unknown]
